FAERS Safety Report 4510537-2 (Version None)
Quarter: 2004Q4

REPORT INFORMATION
  Report Type: 
  Country: None (occurrence: None)
  Receive Date: 20041122
  Receipt Date: 20041111
  Transmission Date: 20050328
  Serious: Yes (Other)
  Sender: FDA-Public Use
  Company Number: 2004-11-0741

PATIENT
  Age: 35 Year
  Sex: Male

DRUGS (10)
  1. CLARITIN [Suspect]
     Indication: ANTIHISTAMINE THERAPY
     Dosage: ORAL
     Route: 048
  2. BENADRYL [Concomitant]
  3. PREDNISONE [Concomitant]
  4. CYCLOSPORINE [Concomitant]
  5. GLYBURIDE [Concomitant]
  6. TYLENOL (CAPLET) [Concomitant]
  7. SENNA FRUIT [Concomitant]
  8. IMODIUM [Concomitant]
  9. BLINDED - SCH 56592 (POSACONAZOLE) STUDY [Concomitant]
  10. LORAZEPAM [Concomitant]

REACTIONS (1)
  - ELECTROCARDIOGRAM QT CORRECTED INTERVAL PROLONGED [None]
